FAERS Safety Report 5309549-0 (Version None)
Quarter: 2007Q2

REPORT INFORMATION
  Report Type: 
  Country: None (occurrence: None)
  Receive Date: 20070427
  Receipt Date: 20061127
  Transmission Date: 20071010
  Serious: No
  Sender: FDA-Public Use
  Company Number: US-GLAXOSMITHKLINE-A0628689A

PATIENT
  Age: 49 Year
  Sex: Male

DRUGS (7)
  1. DEXTROAMPHETAMINE SULFATE [Suspect]
     Indication: SLEEP DISORDER
     Dosage: 5MG VARIABLE DOSE
     Route: 048
  2. DEXAMPHETAMINE [Suspect]
  3. SINGULAIR [Concomitant]
  4. VYTORIN [Concomitant]
  5. BENICAR [Concomitant]
  6. ALLEGRA D 24 HOUR [Concomitant]
  7. LEVOTHYROXINE SODIUM [Concomitant]

REACTIONS (4)
  - DRUG ADMINISTRATION ERROR [None]
  - INCORRECT DOSE ADMINISTERED [None]
  - PHARMACEUTICAL PRODUCT COMPLAINT [None]
  - THERAPEUTIC RESPONSE DECREASED [None]
